FAERS Safety Report 9289995 (Version 1)
Quarter: 2013Q2

REPORT INFORMATION
  Report Type: Spontaneous
  Country: US (occurrence: US)
  Receive Date: 20130515
  Receipt Date: 20130515
  Transmission Date: 20140414
  Serious: No
  Sender: FDA-Public Use
  Company Number: US-MYLANLABS-2012S1009011

PATIENT
  Sex: Female

DRUGS (1)
  1. RIMSO-50 (DIMETHYL SULFOXIDE IRRIGATION USP) [Suspect]

REACTIONS (1)
  - Accidental exposure to product [Not Recovered/Not Resolved]
